FAERS Safety Report 9932275 (Version 1)
Quarter: 2014Q1

REPORT INFORMATION
  Report Type: Spontaneous
  Country: US (occurrence: US)
  Receive Date: 20140228
  Receipt Date: 20140228
  Transmission Date: 20141002
  Serious: No
  Sender: FDA-Public Use
  Company Number: US-ABBVIE-13P-163-1159404-00

PATIENT
  Age: 58 Year
  Sex: Female
  Weight: 53.57 kg

DRUGS (2)
  1. ANDROGEL [Suspect]
     Indication: PRODUCT USED FOR UNKNOWN INDICATION
  2. NEURONTIN [Concomitant]
     Indication: NEUROPATHY PERIPHERAL
     Dates: start: 201309

REACTIONS (6)
  - Dysgeusia [Recovered/Resolved]
  - Flushing [Recovered/Resolved]
  - Lip oedema [Recovered/Resolved]
  - Paraesthesia [Recovered/Resolved]
  - Exposure via partner [Unknown]
  - Abnormal dreams [Recovered/Resolved]
